FAERS Safety Report 21228735 (Version 2)
Quarter: 2022Q3

REPORT INFORMATION
  Report Type: Report from Study
  Country: CN (occurrence: CN)
  Receive Date: 20220818
  Receipt Date: 20220902
  Transmission Date: 20221027
  Serious: Yes (Hospitalization)
  Sender: FDA-Public Use
  Company Number: CN-GSK-CN2022117938

PATIENT
  Age: 64 Year
  Sex: Female

DRUGS (3)
  1. BELANTAMAB MAFODOTIN [Suspect]
     Active Substance: BELANTAMAB MAFODOTIN
     Indication: Plasma cell myeloma
     Dosage: 112.50 MG, CYC
     Route: 042
     Dates: start: 20211221
  2. BORTEZOMIB [Suspect]
     Active Substance: BORTEZOMIB
     Indication: Plasma cell myeloma
     Dosage: 1.82 MG, CYC
     Route: 058
     Dates: start: 20211221
  3. DEXAMETHASONE [Suspect]
     Active Substance: DEXAMETHASONE
     Indication: Plasma cell myeloma
     Dosage: 20 MG
     Dates: start: 20211221

REACTIONS (1)
  - Hypogammaglobulinaemia [Not Recovered/Not Resolved]

NARRATIVE: CASE EVENT DATE: 20220807
